FAERS Safety Report 9818750 (Version 2)
Quarter: 2014Q1

REPORT INFORMATION
  Report Type: Spontaneous
  Country: US (occurrence: US)
  Receive Date: 20140115
  Receipt Date: 20140115
  Transmission Date: 20141002
  Serious: No
  Sender: FDA-Public Use
  Company Number: US-GILEAD-2011-0039951

PATIENT
  Age: 76 Year
  Sex: Female

DRUGS (3)
  1. CAYSTON [Suspect]
     Indication: PRODUCT USED FOR UNKNOWN INDICATION
  2. SPIRIVA [Concomitant]
  3. ALBUTEROL [Concomitant]

REACTIONS (2)
  - Dysphonia [Unknown]
  - Cough [Unknown]
